FAERS Safety Report 25500186 (Version 2)
Quarter: 2025Q3

REPORT INFORMATION
  Report Type: Report from Study
  Country: TR (occurrence: TR)
  Receive Date: 20250701
  Receipt Date: 20250703
  Transmission Date: 20251020
  Serious: Yes (Hospitalization)
  Sender: ROCHE
  Company Number: TR-ROCHE-10000326526

PATIENT

DRUGS (1)
  1. RITUXIMAB [Suspect]
     Active Substance: RITUXIMAB
     Indication: Lupus nephritis
     Route: 065

REACTIONS (10)
  - Bacterial infection [Unknown]
  - Cytomegalovirus infection [Unknown]
  - COVID-19 [Unknown]
  - Herpes zoster [Unknown]
  - Measles [Unknown]
  - Herpes simplex [Unknown]
  - Hypogammaglobulinaemia [Unknown]
  - Infection [Unknown]
  - Hypersensitivity [Unknown]
  - Off label use [Unknown]
